FAERS Safety Report 21349027 (Version 1)
Quarter: 2022Q3

REPORT INFORMATION
  Report Type: Spontaneous
  Country: SK (occurrence: SK)
  Receive Date: 20220919
  Receipt Date: 20220919
  Transmission Date: 20221026
  Serious: Yes (Other)
  Sender: FDA-Public Use
  Company Number: SK-SUN PHARMACEUTICAL INDUSTRIES LTD-2022R1-355065

PATIENT
  Age: 68 Year
  Sex: Male

DRUGS (1)
  1. IMATINIB [Suspect]
     Active Substance: IMATINIB
     Indication: Chronic myeloid leukaemia
     Dosage: 400 MILLIGRAM, QD
     Route: 048

REACTIONS (1)
  - Necrotising retinitis [Recovering/Resolving]
